FAERS Safety Report 8296238 (Version 2)
Quarter: 2012Q4

REPORT INFORMATION
  Report Type: 
  Country: US (occurrence: US)
  Receive Date: 20111216
  Receipt Date: 20121218
  Transmission Date: 20130627
  Serious: No
  Sender: FDA-Public Use
  Company Number: US-BRISTOL-MYERS SQUIBB COMPANY-16148454

PATIENT
  Age: 41 Year
  Sex: Female
  Weight: 96.6 kg

DRUGS (4)
  1. ABILIFY TABS 5 MG [Suspect]
     Indication: ANXIETY
     Dosage: half tablet
     Route: 048
     Dates: start: 20111001, end: 20111010
  2. ABILIFY TABS 5 MG [Suspect]
     Indication: DEPRESSION
     Dosage: half tablet
     Route: 048
     Dates: start: 20111001, end: 20111010
  3. AMBIEN [Concomitant]
     Dosage: At bed time
  4. PAXIL [Concomitant]

REACTIONS (7)
  - Blood pressure increased [Unknown]
  - Heart rate increased [Unknown]
  - Insomnia [Unknown]
  - Nausea [Unknown]
  - Vision blurred [Unknown]
  - Feeling abnormal [Unknown]
  - Wrong technique in drug usage process [Unknown]
